FAERS Safety Report 8297728-2 (Version None)
Quarter: 2012Q2

REPORT INFORMATION
  Report Type: 
  Country: None (occurrence: None)
  Receive Date: 20120419
  Receipt Date: 20120417
  Transmission Date: 20120825
  Serious: Yes (Other)
  Sender: FDA-Public Use
  Company Number: US-PFIZER INC-2012049794

PATIENT
  Sex: Female
  Weight: 77.551 kg

DRUGS (5)
  1. SERTRALINE [Concomitant]
     Indication: DEPRESSION
     Dosage: 50 MG, DAILY
  2. IBUPROFEN (ADVIL) [Suspect]
     Indication: HEADACHE
     Dosage: 400-600 MG
     Route: 048
     Dates: end: 20120213
  3. FENOFIBRATE [Concomitant]
     Indication: BLOOD CHOLESTEROL INCREASED
     Dosage: 200 MG ONCE DAILY
  4. AMBIEN [Concomitant]
     Indication: SLEEP DISORDER
     Dosage: 5 MG, DAILY
  5. LIVALO [Concomitant]
     Indication: BLOOD CHOLESTEROL INCREASED
     Dosage: 2 MG ONCE DAILY

REACTIONS (6)
  - VOMITING [None]
  - POOR QUALITY DRUG ADMINISTERED [None]
  - MALAISE [None]
  - ENTEROCOLITIS INFECTIOUS [None]
  - WHITE BLOOD CELL COUNT INCREASED [None]
  - NAUSEA [None]
